FAERS Safety Report 8415064-8 (Version None)
Quarter: 2012Q2

REPORT INFORMATION
  Report Type: 
  Country: None (occurrence: None)
  Receive Date: 20120606
  Receipt Date: 20120531
  Transmission Date: 20120825
  Serious: No
  Sender: FDA-Public Use
  Company Number: US-JNJFOC-20120601110

PATIENT
  Sex: Male
  Weight: 106.6 kg

DRUGS (9)
  1. FENTANYL-100 [Suspect]
     Indication: AORTIC ANEURYSM
     Dosage: EVERY 48-72 HOURS/TD
     Route: 062
     Dates: end: 20110101
  2. DURAGESIC-100 [Suspect]
     Indication: ARTHRITIS
     Dosage: EVERY 48-72 HOURS/TD
     Route: 062
     Dates: start: 20120101
  3. DURAGESIC-100 [Suspect]
     Dosage: ONCE IN 48-72 HOURS
     Route: 062
     Dates: start: 20110101, end: 20120101
  4. FENTANYL-100 [Suspect]
     Indication: ARTHRITIS
     Dosage: EVERY 48-72 HOURS/TD
     Route: 062
     Dates: end: 20110101
  5. FENTANYL-100 [Suspect]
     Indication: FIBROMYALGIA
     Dosage: EVERY 48-72 HOURS/TD
     Route: 062
     Dates: end: 20110101
  6. DURAGESIC-100 [Suspect]
     Indication: AORTIC ANEURYSM
     Dosage: EVERY 48-72 HOURS/TD
     Route: 062
     Dates: start: 20120101
  7. DURAGESIC-100 [Suspect]
     Dosage: ONCE IN 48-72 HOURS
     Route: 062
     Dates: start: 20110101, end: 20120101
  8. DURAGESIC-100 [Suspect]
     Indication: FIBROMYALGIA
     Dosage: ONCE IN 48-72 HOURS
     Route: 062
     Dates: start: 20110101, end: 20120101
  9. DURAGESIC-100 [Suspect]
     Dosage: EVERY 48-72 HOURS/TD
     Route: 062
     Dates: start: 20120101

REACTIONS (5)
  - INAPPROPRIATE SCHEDULE OF DRUG ADMINISTRATION [None]
  - UNEVALUABLE EVENT [None]
  - PAIN [None]
  - PRODUCT QUALITY ISSUE [None]
  - POOR QUALITY DRUG ADMINISTERED [None]
